FAERS Safety Report 4356915-6 (Version None)
Quarter: 2004Q2

REPORT INFORMATION
  Report Type: 
  Country: None (occurrence: None)
  Receive Date: 20040507
  Receipt Date: 20040429
  Transmission Date: 20050107
  Serious: Yes (Hospitalization)
  Sender: FDA-Public Use
  Company Number: TPA2004A00527

PATIENT

DRUGS (3)
  1. ACTOS [Suspect]
     Indication: DIABETES MELLITUS NON-INSULIN-DEPENDENT
     Dosage: PER ORAL
     Route: 048
     Dates: end: 20031015
  2. CATECHOL (ALL OTHER THERAPEUTIC PRODUCTS) (POULTICE OR PATCH) [Suspect]
     Indication: CARDIAC FAILURE CONGESTIVE
     Dosage: TRANSDERMAL
     Route: 062
     Dates: end: 20031015
  3. FUROSEMIDE [Concomitant]

REACTIONS (13)
  - ASTHENIA [None]
  - BALANCE DISORDER [None]
  - CARDIAC FAILURE CONGESTIVE [None]
  - DERMATITIS EXFOLIATIVE [None]
  - DIABETES MELLITUS INADEQUATE CONTROL [None]
  - FALL [None]
  - MENTAL DISORDER [None]
  - MENTAL IMPAIRMENT [None]
  - MOBILITY DECREASED [None]
  - OEDEMA [None]
  - PULMONARY OEDEMA [None]
  - SKIN BLEEDING [None]
  - WEIGHT DECREASED [None]
